FAERS Safety Report 11074256 (Version 2)
Quarter: 2015Q2

REPORT INFORMATION
  Report Type: Spontaneous
  Country: IT (occurrence: IT)
  Receive Date: 20150429
  Receipt Date: 20150619
  Transmission Date: 20150821
  Serious: Yes (Life-Threatening)
  Sender: FDA-Public Use
  Company Number: IT-MERCK-1504ITA019947

PATIENT
  Age: 48 Year
  Sex: Male
  Weight: 82 kg

DRUGS (5)
  1. REBETOL [Suspect]
     Active Substance: RIBAVIRIN
     Indication: HEPATITIS C
     Dosage: 1200 MG DAILY
     Route: 048
     Dates: start: 20150225
  2. INSULIN [Concomitant]
     Active Substance: INSULIN NOS
     Indication: TYPE 2 DIABETES MELLITUS
  3. DILATREND [Concomitant]
     Active Substance: CARVEDILOL
     Indication: PORTAL HYPERTENSION
     Dosage: 6250 MCG
     Route: 048
     Dates: start: 20140101, end: 20150409
  4. SOVALDI [Suspect]
     Active Substance: SOFOSBUVIR
     Indication: HEPATITIS C
     Dosage: 400 MG DAILY
     Route: 048
     Dates: start: 20150225
  5. ZANTAC [Concomitant]
     Active Substance: RANITIDINE HYDROCHLORIDE
     Indication: GASTRIC MUCOSAL LESION
     Dosage: UNK
     Route: 048
     Dates: start: 20150225, end: 20150409

REACTIONS (3)
  - Hepatic encephalopathy [Recovered/Resolved]
  - Gastrointestinal haemorrhage [Recovered/Resolved]
  - Coma hepatic [Recovered/Resolved]

NARRATIVE: CASE EVENT DATE: 20150409
